FAERS Safety Report 17730132 (Version 1)
Quarter: 2020Q2

REPORT INFORMATION
  Report Type: Spontaneous
  Country: US (occurrence: US)
  Receive Date: 20200430
  Receipt Date: 20200430
  Transmission Date: 20200714
  Serious: No
  Sender: FDA-Public Use
  Company Number: US-BAUSCH-BL-2020-011111

PATIENT
  Sex: Female

DRUGS (1)
  1. LATANOPROST OPHTHALMIC SOLUTION 0.005% [Suspect]
     Active Substance: LATANOPROST
     Indication: INTRAOCULAR PRESSURE INCREASED
     Dosage: SOMETIMES SKIP DOSES FOR A DAY OR TWO
     Route: 047

REACTIONS (3)
  - Nasal congestion [Unknown]
  - Throat irritation [Unknown]
  - Rhinorrhoea [Unknown]
